FAERS Safety Report 20038745 (Version 2)
Quarter: 2021Q4

REPORT INFORMATION
  Report Type: Spontaneous
  Country: US (occurrence: US)
  Receive Date: 20211105
  Receipt Date: 20211109
  Transmission Date: 20220303
  Serious: No
  Sender: FDA-Public Use
  Company Number: US-PFIZER INC-202100922045

PATIENT
  Age: 60 Year
  Sex: Male

DRUGS (7)
  1. INLYTA [Suspect]
     Active Substance: AXITINIB
     Indication: Renal cancer
     Dosage: 5 MG, 2X/DAY
     Route: 048
     Dates: start: 20210628
  2. INLYTA [Suspect]
     Active Substance: AXITINIB
     Dosage: 5 MG, 2X/DAY
     Route: 048
     Dates: start: 20210628
  3. KEYTRUDA [Concomitant]
     Active Substance: PEMBROLIZUMAB
     Dosage: UNK
  4. ONDANSETRON HCL [Concomitant]
     Active Substance: ONDANSETRON HYDROCHLORIDE
     Dosage: UNK
  5. CEPHALEXIN [Concomitant]
     Active Substance: CEPHALEXIN
     Dosage: UNK
  6. AMLODIPINE BESYLATE [Concomitant]
     Active Substance: AMLODIPINE BESYLATE
     Dosage: UNK
  7. DIAZEPAM [Concomitant]
     Active Substance: DIAZEPAM
     Dosage: UNK

REACTIONS (15)
  - Fatigue [Unknown]
  - Headache [Unknown]
  - Nausea [Unknown]
  - Dry skin [Unknown]
  - Paraesthesia [Unknown]
  - Dysphonia [Unknown]
  - Dry throat [Unknown]
  - Joint stiffness [Unknown]
  - Hypertension [Unknown]
  - Nasal discomfort [Unknown]
  - Nasal dryness [Unknown]
  - Oral pain [Unknown]
  - Prostatic specific antigen increased [Unknown]
  - Night sweats [Unknown]
  - Temperature intolerance [Unknown]
